FAERS Safety Report 21109973 (Version 3)
Quarter: 2023Q2

REPORT INFORMATION
  Report Type: Spontaneous
  Country: CA (occurrence: CA)
  Receive Date: 20220721
  Receipt Date: 20230517
  Transmission Date: 20230722
  Serious: Yes (Other)
  Sender: FDA-Public Use
  Company Number: CA-SAMSUNG BIOEPIS-SB-2022-17348

PATIENT
  Age: 23 Year
  Sex: Male
  Weight: 91 kg

DRUGS (6)
  1. INFLIXIMAB [Suspect]
     Active Substance: INFLIXIMAB
     Indication: Crohn^s disease
     Route: 042
  2. INFLIXIMAB [Suspect]
     Active Substance: INFLIXIMAB
     Route: 042
  3. INFLIXIMAB [Suspect]
     Active Substance: INFLIXIMAB
     Route: 042
  4. METHOTREXATE [Concomitant]
     Active Substance: METHOTREXATE
     Indication: Product used for unknown indication
     Route: 065
  5. PREDNISONE [Concomitant]
     Active Substance: PREDNISONE
     Indication: Product used for unknown indication
     Route: 048
  6. PREDNISONE [Concomitant]
     Active Substance: PREDNISONE
     Route: 048

REACTIONS (23)
  - Blood pressure fluctuation [Recovered/Resolved]
  - Weight decreased [Recovered/Resolved]
  - Condition aggravated [Recovered/Resolved]
  - Decreased appetite [Recovered/Resolved]
  - Micturition urgency [Recovered/Resolved]
  - Arthralgia [Recovered/Resolved]
  - Chills [Recovered/Resolved]
  - Eye inflammation [Recovered/Resolved]
  - Fatigue [Recovered/Resolved]
  - Hypophagia [Recovered/Resolved]
  - Joint swelling [Recovered/Resolved]
  - Mouth ulceration [Recovered/Resolved]
  - Mucous stools [Recovered/Resolved]
  - Nausea [Recovered/Resolved]
  - Night sweats [Recovered/Resolved]
  - Terminal insomnia [Recovered/Resolved]
  - Vomiting [Recovered/Resolved]
  - Weight increased [Recovered/Resolved]
  - Therapeutic response shortened [Recovered/Resolved]
  - Inappropriate schedule of product administration [Recovered/Resolved]
  - Product dose omission issue [Recovered/Resolved]
  - Intentional product use issue [Recovered/Resolved]
  - Off label use [Recovered/Resolved]
